FAERS Safety Report 5588743-8 (Version None)
Quarter: 2008Q1

REPORT INFORMATION
  Report Type: 
  Country: None (occurrence: None)
  Receive Date: 20080111
  Receipt Date: 20080103
  Transmission Date: 20080703
  Serious: Yes (Other)
  Sender: FDA-Public Use
  Company Number: B0360992A

PATIENT
  Age: 26 Year
  Sex: Male

DRUGS (2)
  1. PAROXETINE HYDROCHLORIDE [Suspect]
     Indication: DEPRESSION
     Route: 065
     Dates: start: 19970219
  2. AMITRIPTYLINE HCL [Concomitant]
     Dates: start: 20030331

REACTIONS (6)
  - ANGER [None]
  - DRUG WITHDRAWAL SYNDROME [None]
  - FATIGUE [None]
  - MOOD SWINGS [None]
  - SOCIAL PHOBIA [None]
  - SUICIDAL IDEATION [None]
